FAERS Safety Report 7218748-2 (Version None)
Quarter: 2011Q1

REPORT INFORMATION
  Report Type: 
  Country: None (occurrence: None)
  Receive Date: 20110110
  Receipt Date: 20100305
  Transmission Date: 20110831
  Serious: No
  Sender: FDA-Public Use
  Company Number: US-ABBOTT-10P-163-0630474-00

PATIENT
  Sex: Male

DRUGS (4)
  1. VICODIN [Suspect]
     Indication: PAIN
  2. FAMIR [Concomitant]
     Indication: PAIN
  3. PREDNISONE [Concomitant]
     Indication: PAIN
  4. DEMEROL [Concomitant]
     Indication: PAIN

REACTIONS (1)
  - DRUG INEFFECTIVE [None]
